FAERS Safety Report 9274525 (Version 1)
Quarter: 2013Q2

REPORT INFORMATION
  Report Type: Spontaneous
  Country: JP (occurrence: JP)
  Receive Date: 20130507
  Receipt Date: 20130507
  Transmission Date: 20140414
  Serious: Yes (Hospitalization)
  Sender: FDA-Public Use
  Company Number: JP-009507513-1305JPN001247

PATIENT
  Sex: 0

DRUGS (1)
  1. DIAZOXIDE CAPSULES 25 MG?MSD? [Suspect]
     Indication: INSULINOMA
     Route: 048

REACTIONS (2)
  - Oedema [Recovered/Resolved]
  - Blood uric acid increased [Unknown]
